FAERS Safety Report 6198517-5 (Version None)
Quarter: 2009Q2

REPORT INFORMATION
  Report Type: 
  Country: None (occurrence: None)
  Receive Date: 20090521
  Receipt Date: 20090514
  Transmission Date: 20091009
  Serious: Yes (Other)
  Sender: FDA-Public Use
  Company Number: PHEH2008US08794

PATIENT
  Sex: Female

DRUGS (2)
  1. AREDIA [Suspect]
  2. ZOMETA [Suspect]

REACTIONS (9)
  - ANHEDONIA [None]
  - ANXIETY [None]
  - DISABILITY [None]
  - EATING DISORDER [None]
  - FISTULA [None]
  - INJURY [None]
  - MAXILLOFACIAL OPERATION [None]
  - OSTEONECROSIS [None]
  - PAIN [None]
